FAERS Safety Report 7883782-6 (Version None)
Quarter: 2011Q4

REPORT INFORMATION
  Report Type: 
  Country: None (occurrence: None)
  Receive Date: 20111102
  Receipt Date: 20111026
  Transmission Date: 20120403
  Serious: Yes (Other)
  Sender: FDA-Public Use
  Company Number: US-SANOFI-AVENTIS-2011SA068287

PATIENT
  Age: 61 Year
  Sex: Female
  Weight: 84 kg

DRUGS (10)
  1. NOVOLOG [Concomitant]
     Dosage: SLIDING SCALE
  2. CYCLOPHOSPHAMIDE [Concomitant]
     Dates: start: 20110101
  3. NEXIUM [Concomitant]
     Dates: start: 20110101
  4. LANTUS [Suspect]
     Dosage: DOSE:180 UNIT(S)
     Route: 058
  5. METOPROLOL TARTRATE [Concomitant]
     Dates: start: 20110101
  6. LANTUS [Suspect]
     Indication: TYPE 2 DIABETES MELLITUS
     Dosage: DOSE:160 UNIT(S)
     Route: 058
     Dates: start: 20021101
  7. PLAVIX [Suspect]
     Route: 048
     Dates: start: 19920101
  8. SOLOSTAR [Suspect]
     Indication: TYPE 2 DIABETES MELLITUS
  9. GABAPENTIN [Concomitant]
     Dates: start: 20090101
  10. SPIRONOLACTONE [Concomitant]
     Dates: start: 20110101

REACTIONS (2)
  - EYE DISORDER [None]
  - CORONARY ARTERY BYPASS [None]
